FAERS Safety Report 8911676 (Version 1)
Quarter: 2012Q4

REPORT INFORMATION
  Report Type: 
  Country: FR (occurrence: FR)
  Receive Date: 20121116
  Receipt Date: 20121116
  Transmission Date: 20130627
  Serious: Yes (Hospitalization, Other)
  Sender: FDA-Public Use
  Company Number: FR-PFIZER INC-2012282176

PATIENT
  Age: 59 Year
  Sex: Female

DRUGS (14)
  1. XANAX [Suspect]
     Dosage: 0.25 mg, 2x/day
     Route: 048
  2. MEDROL [Suspect]
     Dosage: 16 mg, 2x/day
     Route: 048
     Dates: end: 201209
  3. VINCRISTINE SULFATE [Suspect]
     Indication: OLIGODENDROGLIOMA
     Dosage: 2 mg, cyclic
     Route: 042
     Dates: start: 20120802, end: 20120802
  4. VINCRISTINE SULFATE [Suspect]
     Dosage: 2 mg, cyclic
     Route: 042
     Dates: start: 20120823, end: 20120823
  5. LOMUSTINE [Suspect]
     Indication: OLIGODENDROGLIOMA
     Dosage: 160 mg, single
     Route: 048
     Dates: start: 20120725, end: 20120725
  6. NATULAN [Suspect]
     Dosage: UNK
     Route: 048
     Dates: start: 20120802, end: 20120816
  7. DEPAKINE CHRONO [Suspect]
     Indication: EPILEPSY
     Dosage: 1000 mg, 2x/day
     Route: 048
     Dates: end: 201209
  8. EZETROL [Suspect]
     Indication: HYPERCHOLESTEROLEMIA
     Dosage: 10 mg, 1x/day
     Route: 048
     Dates: end: 201209
  9. ENDOTELON [Suspect]
     Dosage: 1 DF, 1x/day
     Route: 048
     Dates: end: 201209
  10. INEXIUM [Suspect]
     Dosage: 20 mg, 1x/day
     Route: 048
     Dates: end: 201209
  11. ZANIDIP [Suspect]
     Dosage: 10 mg, 1x/day
     Route: 048
     Dates: end: 201209
  12. MOXONIDINE [Suspect]
     Indication: HYPERTENSION ARTERIAL
     Dosage: 0.25 mg, 1x/day
     Route: 048
     Dates: end: 201209
  13. TEMESTA [Suspect]
     Dosage: 1 mg, 1x/day
     Route: 048
     Dates: start: 201207, end: 201209
  14. DITROPAN [Suspect]
     Dosage: 2.5 mg, 2x/day
     Route: 048
     Dates: start: 20120903, end: 20120907

REACTIONS (12)
  - Mixed liver injury [Not Recovered/Not Resolved]
  - Fall [Unknown]
  - Blood pressure abnormal [Unknown]
  - VIIth nerve paralysis [Unknown]
  - Hemiparesis [Unknown]
  - Balance disorder [Unknown]
  - Altered state of consciousness [Unknown]
  - Blood parathyroid hormone increased [Unknown]
  - Hyperammonaemia [Unknown]
  - Blood sodium decreased [Unknown]
  - Blood calcium decreased [Unknown]
  - C-reactive protein increased [Unknown]
